FAERS Safety Report 4522180-X (Version None)
Quarter: 2004Q4

REPORT INFORMATION
  Report Type: 
  Country: None (occurrence: None)
  Receive Date: 20041206
  Receipt Date: 20041118
  Transmission Date: 20050328
  Serious: Yes (Hospitalization)
  Sender: FDA-Public Use
  Company Number: 206846

PATIENT
  Age: 61 Year
  Sex: Female

DRUGS (1)
  1. AVONEX [Suspect]
     Indication: MULTIPLE SCLEROSIS
     Dosage: 30 UG; QW; IM
     Route: 030
     Dates: start: 19990501

REACTIONS (5)
  - ARTERIAL INJURY [None]
  - FALL [None]
  - LUMBAR VERTEBRAL FRACTURE [None]
  - MULTIPLE SCLEROSIS [None]
  - PELVIC FRACTURE [None]
